FAERS Safety Report 4801307-6 (Version None)
Quarter: 2005Q4

REPORT INFORMATION
  Report Type: 
  Country: None (occurrence: None)
  Receive Date: 20051017
  Receipt Date: 20051012
  Transmission Date: 20060501
  Serious: Yes (Hospitalization, Other)
  Sender: FDA-Public Use
  Company Number: BE-MERCK-0510USA06961

PATIENT
  Age: 30 Year
  Sex: Male
  Weight: 62 kg

DRUGS (3)
  1. TIAMATE [Suspect]
     Route: 048
  2. LORAZEPAM [Concomitant]
     Route: 065
  3. ALCOHOL [Concomitant]
     Route: 065

REACTIONS (10)
  - ABDOMINAL DISTENSION [None]
  - BUNDLE BRANCH BLOCK LEFT [None]
  - CARDIOGENIC SHOCK [None]
  - ILEUS [None]
  - NODAL RHYTHM [None]
  - OVERDOSE [None]
  - PNEUMONIA [None]
  - RESPIRATORY FAILURE [None]
  - RHABDOMYOLYSIS [None]
  - THROMBOCYTOPENIA [None]
